FAERS Safety Report 4517673-5 (Version None)
Quarter: 2004Q4

REPORT INFORMATION
  Report Type: 
  Country: None (occurrence: None)
  Receive Date: 20041203
  Receipt Date: 20041119
  Transmission Date: 20050328
  Serious: Yes (Hospitalization)
  Sender: FDA-Public Use
  Company Number: PHBS2004FR15592

PATIENT
  Age: 83 Year
  Sex: Female

DRUGS (13)
  1. OMEPRAZOLE [Concomitant]
  2. NAFTIDROFURYL [Concomitant]
  3. ACETAMINOPHEN [Concomitant]
  4. DIOSMINE [Concomitant]
  5. LORAZEPAM [Concomitant]
  6. RISEDRONATE SODIUM [Concomitant]
  7. CALCIUM/VITAMIN D3 [Concomitant]
  8. LACTULOSE [Concomitant]
  9. NITRIDERM TTS [Concomitant]
     Indication: ANGINA PECTORIS
     Dosage: 5 MG
  10. CORTANCYL [Concomitant]
     Indication: RHEUMATOID ARTHRITIS
  11. FLUVOXAMINE [Concomitant]
     Dosage: 100 MG/DAY
     Route: 048
  12. LOPRESSOR [Suspect]
     Indication: HYPERTENSION
     Dosage: 100 MG/DAY
     Route: 048
     Dates: start: 20040705, end: 20040801
  13. LOPRESSOR [Suspect]
     Dosage: 50MG/DAY
     Dates: end: 20040704

REACTIONS (7)
  - BLOOD CREATINE INCREASED [None]
  - BRADYCARDIA [None]
  - CREATININE RENAL CLEARANCE DECREASED [None]
  - DIZZINESS [None]
  - ELECTROCARDIOGRAM T WAVE INVERSION [None]
  - RENAL FAILURE [None]
  - VOMITING [None]
